FAERS Safety Report 5820444-0 (Version None)
Quarter: 2008Q3

REPORT INFORMATION
  Report Type: 
  Country: None (occurrence: None)
  Receive Date: 20080724
  Receipt Date: 20070726
  Transmission Date: 20090109
  Serious: No
  Sender: FDA-Public Use
  Company Number: A0667133A

PATIENT
  Sex: Male

DRUGS (2)
  1. AVANDIA [Suspect]
  2. ADVAIR DISKUS 100/50 [Suspect]
     Indication: CHRONIC OBSTRUCTIVE PULMONARY DISEASE

REACTIONS (2)
  - CARDIAC DISORDER [None]
  - LIVER DISORDER [None]
